FAERS Safety Report 4722643-8 (Version None)
Quarter: 2005Q3

REPORT INFORMATION
  Report Type: 
  Country: None (occurrence: None)
  Receive Date: 20050720
  Receipt Date: 20050708
  Transmission Date: 20060218
  Serious: Yes (Hospitalization, Other)
  Sender: FDA-Public Use
  Company Number: 2005100361

PATIENT
  Age: 95 Year
  Sex: Male

DRUGS (3)
  1. CELEBREX [Suspect]
     Indication: ARTHRITIS
     Dosage: 200 MG (200 MG, 1 IN 1 D)
     Dates: start: 20040101
  2. BUMEX [Concomitant]
  3. DIGOXIN [Concomitant]

REACTIONS (3)
  - ANAEMIA [None]
  - METASTATIC NEOPLASM [None]
  - MOBILITY DECREASED [None]
